FAERS Safety Report 5229767-X (Version None)
Quarter: 2007Q1

REPORT INFORMATION
  Report Type: 
  Country: None (occurrence: None)
  Receive Date: 20070206
  Receipt Date: 20070124
  Transmission Date: 20070707
  Serious: Yes (Life-Threatening, Hospitalization, Other)
  Sender: FDA-Public Use
  Company Number: DE-PFIZER INC-2006107557

PATIENT
  Sex: Female
  Weight: 68 kg

DRUGS (5)
  1. SUTENT [Suspect]
     Indication: GASTROINTESTINAL STROMAL TUMOUR
     Route: 048
     Dates: start: 20060619, end: 20060717
  2. IMATINIB MESYLATE [Concomitant]
  3. RAMIPRIL [Concomitant]
     Route: 048
  4. HYDROCHLOROTHIAZIDE [Concomitant]
     Route: 048
  5. ZOFRAN [Concomitant]
     Route: 060
     Dates: start: 20060601, end: 20060701

REACTIONS (9)
  - ACUTE PRERENAL FAILURE [None]
  - ANAEMIA [None]
  - CONSTIPATION [None]
  - DIARRHOEA [None]
  - GENERAL PHYSICAL HEALTH DETERIORATION [None]
  - NAUSEA [None]
  - NEOPLASM PROGRESSION [None]
  - NUTRITIONAL CONDITION ABNORMAL [None]
  - VOMITING [None]
